FAERS Safety Report 7485249-6 (Version None)
Quarter: 2011Q2

REPORT INFORMATION
  Report Type: 
  Country: None (occurrence: None)
  Receive Date: 20110517
  Receipt Date: 20110512
  Transmission Date: 20111010
  Serious: Yes (Other)
  Sender: FDA-Public Use
  Company Number: US-ROCHE-776852

PATIENT
  Sex: Female

DRUGS (1)
  1. ACCUTANE [Suspect]
     Route: 065
     Dates: start: 19941201, end: 19981231

REACTIONS (4)
  - CROHN'S DISEASE [None]
  - ANXIETY [None]
  - POST-TRAUMATIC STRESS DISORDER [None]
  - DEPRESSION [None]
